FAERS Safety Report 5825325-4 (Version None)
Quarter: 2008Q3

REPORT INFORMATION
  Report Type: 
  Country: None (occurrence: None)
  Receive Date: 20080722
  Receipt Date: 20080714
  Transmission Date: 20090109
  Serious: Yes (Hospitalization)
  Sender: FDA-Public Use
  Company Number: 2008AL004165

PATIENT
  Age: 86 Year
  Sex: Female
  Weight: 53.5244 kg

DRUGS (6)
  1. DIGOXIN [Suspect]
     Indication: ATRIAL FIBRILLATION
     Dosage: 0.125MG,DAILY,PO
     Route: 048
     Dates: start: 20020410
  2. DIOVAN [Concomitant]
  3. LIPITOR [Concomitant]
  4. LASIX [Concomitant]
  5. COREG [Concomitant]
  6. NITRGLYCERIN TRANSDERMAL SYSTEM [Concomitant]

REACTIONS (4)
  - DIZZINESS [None]
  - DRUG LEVEL INCREASED [None]
  - NAUSEA [None]
  - PRESYNCOPE [None]
